FAERS Safety Report 10507075 (Version 1)
Quarter: 2014Q4

REPORT INFORMATION
  Report Type: Spontaneous
  Country: US (occurrence: None)
  Receive Date: 20141008
  Receipt Date: 20141008
  Transmission Date: 20150528
  Serious: Yes (Other)
  Sender: FDA-Public Use
  Company Number: None

PATIENT
  Age: 48 Year
  Sex: Female
  Weight: 54.43 kg

DRUGS (1)
  1. MODAFINIL. [Suspect]
     Active Substance: MODAFINIL
     Indication: NARCOLEPSY
     Dosage: 1 PILL TWICE DAILY TAKEN BY MOUTH
     Route: 048

REACTIONS (7)
  - Chapped lips [None]
  - Glossodynia [None]
  - Tongue dry [None]
  - Lip exfoliation [None]
  - Stomatitis [None]
  - Tongue discolouration [None]
  - Oral pain [None]

NARRATIVE: CASE EVENT DATE: 20140907
